FAERS Safety Report 9689018 (Version 1)
Quarter: 2013Q4

REPORT INFORMATION
  Report Type: Spontaneous
  Country: NO (occurrence: GB)
  Receive Date: 20131114
  Receipt Date: 20131114
  Transmission Date: 20140711
  Serious: Yes (Other)
  Sender: FDA-Public Use
  Company Number: NO-PFIZER INC-2013323261

PATIENT
  Sex: Female

DRUGS (1)
  1. DOXAZOSIN MESILATE [Suspect]
     Indication: BLOOD PRESSURE INCREASED
     Dosage: UNK
     Dates: start: 20131102, end: 20131104

REACTIONS (2)
  - Loss of consciousness [Recovered/Resolved]
  - Syncope [Unknown]
